FAERS Safety Report 6801031-4 (Version None)
Quarter: 2010Q2

REPORT INFORMATION
  Report Type: 
  Country: None (occurrence: None)
  Receive Date: 20100624
  Receipt Date: 20100610
  Transmission Date: 20101027
  Serious: Yes (Hospitalization)
  Sender: FDA-Public Use
  Company Number: 2010-2115

PATIENT
  Age: 65 Year
  Sex: Male

DRUGS (1)
  1. APO-GO AMPOULES (APO-GO) (APOMORPHINE HYDROCHLORIDE) (APOMORPHINE HYDR [Suspect]
     Indication: DRUG USE FOR UNKNOWN INDICATION
     Dosage: 07:00AM TO 10:00PM CONTINUOUS (NOT REPORTED,07:00AM TO 10:00PM CONTINUOUS), SUBCUTANEOUS
     Route: 058
     Dates: start: 20100116

REACTIONS (1)
  - DISLOCATION OF VERTEBRA [None]
